FAERS Safety Report 19008577 (Version 2)
Quarter: 2021Q2

REPORT INFORMATION
  Report Type: Report from Study
  Country: ES (occurrence: ES)
  Receive Date: 20210315
  Receipt Date: 20210421
  Transmission Date: 20210717
  Serious: Yes (Hospitalization)
  Sender: FDA-Public Use
  Company Number: ES-ROCHE-2784693

PATIENT
  Age: 20 Year
  Sex: Male

DRUGS (9)
  1. METOCLOPRAMIDE. [Concomitant]
     Active Substance: METOCLOPRAMIDE
  2. CISPLATINE [Concomitant]
     Active Substance: CISPLATIN
  3. OMEPRAZOLE. [Concomitant]
     Active Substance: OMEPRAZOLE
  4. TRAMADOL. [Concomitant]
     Active Substance: TRAMADOL
  5. SENNOSIDES A+B [Concomitant]
     Active Substance: SENNOSIDES A AND B
  6. DEXAMETASONE [Concomitant]
     Active Substance: DEXAMETHASONE
  7. MACROGOL [Concomitant]
     Active Substance: POLYETHYLENE GLYCOLS
  8. PARACETAMOL [Concomitant]
     Active Substance: ACETAMINOPHEN
  9. ATEZOLIZUMAB. [Suspect]
     Active Substance: ATEZOLIZUMAB
     Indication: METASTATIC NEOPLASM
     Dosage: ON 03/MAR/2021, SHE RECEIVED MOST RECENT DOSE OF ATEZOLIZUMAB 1200 MG.
     Route: 041

REACTIONS (1)
  - Pleural effusion [Recovered/Resolved]
